FAERS Safety Report 4833033-1 (Version None)
Quarter: 2005Q4

REPORT INFORMATION
  Report Type: 
  Country: None (occurrence: None)
  Receive Date: 20051121
  Receipt Date: 20051109
  Transmission Date: 20060501
  Serious: Yes (Hospitalization)
  Sender: FDA-Public Use
  Company Number: FR-BRISTOL-MYERS SQUIBB COMPANY-13176250

PATIENT
  Age: 79 Year
  Sex: Female

DRUGS (9)
  1. BRISTOPEN [Suspect]
     Dates: start: 20050909, end: 20050923
  2. PYOSTACINE [Suspect]
     Dates: start: 20050909
  3. VANCOMYCIN [Concomitant]
     Dosage: DOSES: 2
     Route: 042
  4. GENTAMICIN [Concomitant]
     Dosage: DOSE: 2
     Route: 042
  5. TENORMIN [Concomitant]
  6. ZESTRIL [Concomitant]
  7. TANGANIL [Concomitant]
  8. LASILIX [Concomitant]
  9. ZOCOR [Concomitant]

REACTIONS (3)
  - DERMATITIS BULLOUS [None]
  - FACE OEDEMA [None]
  - RASH ERYTHEMATOUS [None]
